FAERS Safety Report 23115328 (Version 1)
Quarter: 2023Q4

REPORT INFORMATION
  Report Type: Spontaneous
  Country: US (occurrence: None)
  Receive Date: 20231026
  Receipt Date: 20231026
  Transmission Date: 20240110
  Serious: Yes (Life-Threatening, Hospitalization)
  Sender: FDA-Public Use
  Company Number: None

PATIENT
  Age: 52 Year
  Sex: Male

DRUGS (1)
  1. APIXABAN [Suspect]
     Active Substance: APIXABAN

REACTIONS (7)
  - Asthenia [None]
  - Hypotension [None]
  - Red blood cell transfusion [None]
  - Gastric ulcer [None]
  - Rectal haemorrhage [None]
  - Haemorrhoids [None]
  - Therapy interrupted [None]

NARRATIVE: CASE EVENT DATE: 20230713
